FAERS Safety Report 4927908-2 (Version None)
Quarter: 2006Q1

REPORT INFORMATION
  Report Type: 
  Country: None (occurrence: None)
  Receive Date: 20060222
  Receipt Date: 20060217
  Transmission Date: 20060701
  Serious: Yes (Death, Other)
  Sender: FDA-Public Use
  Company Number: 200610931BWH

PATIENT
  Age: 55 Year
  Sex: Male

DRUGS (3)
  1. AVELOX [Suspect]
     Indication: EAR INFECTION
     Dosage: 400 MG, TOTAL DAILY, ORAL
     Route: 048
     Dates: start: 20060114, end: 20060121
  2. STATIN [Concomitant]
  3. ADVIL [Concomitant]

REACTIONS (6)
  - GAIT DISTURBANCE [None]
  - GENERAL PHYSICAL HEALTH DETERIORATION [None]
  - HAEMODIALYSIS [None]
  - HEPATIC FAILURE [None]
  - MALAISE [None]
  - RENAL FAILURE [None]
